FAERS Safety Report 4591113-2 (Version None)
Quarter: 2005Q1

REPORT INFORMATION
  Report Type: 
  Country: None (occurrence: None)
  Receive Date: 20050223
  Receipt Date: 20050223
  Transmission Date: 20050727
  Serious: Yes (Hospitalization)
  Sender: FDA-Public Use
  Company Number: None

PATIENT
  Sex: Male

DRUGS (6)
  1. SIMVASTATIN [Suspect]
     Indication: HYPERLIPIDAEMIA
     Dosage: 10 MG HS ORAL
     Route: 048
  2. TRAVOPROST [Concomitant]
  3. LISINOPRIL [Concomitant]
  4. GLYBURIDE [Concomitant]
  5. BRIMONIDINE TARTRATE [Concomitant]
  6. BETAXOLOL [Concomitant]

REACTIONS (2)
  - BLOOD CREATINE PHOSPHOKINASE INCREASED [None]
  - FALL [None]
